FAERS Safety Report 8974953 (Version 2)
Quarter: 2013Q2

REPORT INFORMATION
  Report Type: Spontaneous
  Country: US (occurrence: US)
  Receive Date: 20121220
  Receipt Date: 20130402
  Transmission Date: 20140414
  Serious: Yes (Death, Hospitalization)
  Sender: FDA-Public Use
  Company Number: US-BAYER-2012-132991

PATIENT
  Age: 33 Year
  Sex: Female
  Weight: 79.37 kg

DRUGS (27)
  1. YAZ [Suspect]
     Indication: ACNE
  2. TRIAMCINOLONE [Concomitant]
     Indication: ECZEMA
     Route: 048
  3. LIDEX [Concomitant]
     Indication: RASH
     Dosage: 60 G, BID FOR 1-2 WEEKS
     Route: 061
  4. AZITHROMYCIN [Concomitant]
     Dosage: 250 MG, UNK
     Route: 048
  5. FLUOCINONIDE-E [Concomitant]
     Dosage: 0.05 UNK, UNK
     Route: 061
  6. CHERATUSSIN AC [Concomitant]
     Route: 048
  7. CEPHALEXIN [Concomitant]
     Dosage: 500 MG, UNK
     Route: 048
  8. IBUPROFEN [Concomitant]
     Indication: PAIN
     Route: 048
  9. AMBIEN [Concomitant]
     Route: 048
  10. LEVAQUIN [Concomitant]
     Dosage: 500 MG, UNK
     Route: 048
  11. PRO-AIR [Concomitant]
     Dosage: 90 MCG
     Route: 045
  12. THERAFLU [Concomitant]
     Route: 048
  13. NYQUIL [Concomitant]
     Route: 048
  14. ROBITUSSIN A-C [CODEINE PHOSPHATE,GUAIFENESIN] [Concomitant]
     Indication: COUGH
  15. KEFLEX [Concomitant]
  16. ALBUTEROL [Concomitant]
  17. TORADOL [Concomitant]
     Route: 042
  18. ATIVAN [Concomitant]
     Route: 042
  19. ROCEPHIN [Concomitant]
     Route: 042
  20. ZITHROMAX [Concomitant]
     Route: 042
  21. PROTON PUMP INHIBITORS [Concomitant]
  22. OSELTAMIVIR [Concomitant]
  23. PERAMIVIR [Concomitant]
     Route: 042
  24. SOLU-MEDROL [Concomitant]
     Route: 042
  25. VALPROIC ACID [Concomitant]
  26. DORIPENEM [Concomitant]
  27. VANCOMYCIN [Concomitant]

REACTIONS (6)
  - Injury [Fatal]
  - Pain [None]
  - Pain [Fatal]
  - Pulmonary embolism [Fatal]
  - Deep vein thrombosis [Fatal]
  - Pneumonia [Fatal]
